FAERS Safety Report 11873684 (Version 5)
Quarter: 2016Q1

REPORT INFORMATION
  Report Type: Spontaneous
  Country: FI (occurrence: FI)
  Receive Date: 20151228
  Receipt Date: 20160201
  Transmission Date: 20160526
  Serious: Yes (Hospitalization, Other)
  Sender: FDA-Public Use
  Company Number: FI-JNJFOC-20151215711

PATIENT
  Age: 65 Year
  Sex: Female

DRUGS (7)
  1. GABAPENTIN. [Concomitant]
     Active Substance: GABAPENTIN
     Route: 065
  2. LEVOTHYROXINE. [Concomitant]
     Active Substance: LEVOTHYROXINE
     Route: 065
  3. LOSARTAN. [Concomitant]
     Active Substance: LOSARTAN
     Route: 065
  4. BISOPROLOL/HYDROCHLOROTHIAZID [Concomitant]
     Route: 065
  5. ROGAINE SOLUTION 2% [Suspect]
     Active Substance: MINOXIDIL
     Route: 065
  6. ROGAINE SOLUTION 2% [Suspect]
     Active Substance: MINOXIDIL
     Indication: ALOPECIA
     Dosage: ACCORDING TO RECOMMENDATIONS
     Route: 065
     Dates: start: 201505, end: 201506
  7. SIMVASTATIN. [Concomitant]
     Active Substance: SIMVASTATIN
     Route: 065

REACTIONS (10)
  - Cerebral infarction [Unknown]
  - Application site exfoliation [Unknown]
  - Cerebrovascular accident [Recovered/Resolved]
  - Scab [Recovered/Resolved]
  - Off label use [Recovered/Resolved]
  - Product use issue [Recovered/Resolved]
  - Dandruff [Recovered/Resolved]
  - Alopecia [Unknown]
  - Application site scab [Unknown]
  - Asthenia [Unknown]

NARRATIVE: CASE EVENT DATE: 2015
